FAERS Safety Report 15402099 (Version 2)
Quarter: 2018Q3

REPORT INFORMATION
  Report Type: Report from Study
  Country: EE (occurrence: EE)
  Receive Date: 20180919
  Receipt Date: 20180925
  Transmission Date: 20181010
  Serious: Yes (Death, Hospitalization, Other)
  Sender: FDA-Public Use
  Company Number: EE-009507513-1809EST006641

PATIENT
  Age: 57 Year
  Sex: Male

DRUGS (1)
  1. KEYTRUDA [Suspect]
     Active Substance: PEMBROLIZUMAB
     Indication: NON-SMALL CELL LUNG CANCER
     Dosage: 200 MG, ONE TIME DAILY DOSAGE (STRENGTH: 25 MG/ML)
     Dates: start: 20180717, end: 20180717

REACTIONS (4)
  - Gastrointestinal haemorrhage [Fatal]
  - Pulmonary haemorrhage [Fatal]
  - Haematochezia [Fatal]
  - Malignant neoplasm progression [Fatal]

NARRATIVE: CASE EVENT DATE: 201807
